FAERS Safety Report 16031273 (Version 7)
Quarter: 2019Q3

REPORT INFORMATION
  Report Type: Report from Study
  Country: US (occurrence: US)
  Receive Date: 20190304
  Receipt Date: 20190917
  Transmission Date: 20191004
  Serious: Yes (Hospitalization, Other)
  Sender: FDA-Public Use
  Company Number: US-TAKEDA-2019TUS010865

PATIENT
  Age: 60 Year
  Sex: Female

DRUGS (3)
  1. PONATINIB [Suspect]
     Active Substance: PONATINIB
     Dosage: 30 MILLIGRAM, QD
     Route: 048
     Dates: start: 201811
  2. PONATINIB [Suspect]
     Active Substance: PONATINIB
     Dosage: 45 MILLIGRAM, QD
     Route: 048
  3. PONATINIB [Suspect]
     Active Substance: PONATINIB
     Indication: CHRONIC MYELOID LEUKAEMIA
     Dosage: 15 MILLIGRAM, QD
     Route: 048
     Dates: start: 201811

REACTIONS (13)
  - Bronchopulmonary aspergillosis [Unknown]
  - Anaemia [Unknown]
  - Colitis [Unknown]
  - Thrombocytopenia [Unknown]
  - Pain [Unknown]
  - Postoperative wound infection [Unknown]
  - Cytopenia [Unknown]
  - Upper respiratory tract infection [Unknown]
  - Gastrointestinal haemorrhage [Unknown]
  - Blast cell crisis [Unknown]
  - Eye swelling [Unknown]
  - Pain in extremity [Unknown]
  - Pleural effusion [Unknown]

NARRATIVE: CASE EVENT DATE: 20190108
